FAERS Safety Report 25583290 (Version 2)
Quarter: 2025Q3

REPORT INFORMATION
  Report Type: Spontaneous
  Country: US (occurrence: None)
  Receive Date: 20250721
  Receipt Date: 20250727
  Transmission Date: 20251021
  Serious: No
  Sender: AXSOME THERAPEUTICS, INC.
  Company Number: US-Axsome Therapeutics, Inc.-AXS202506-001084

PATIENT
  Age: 42 Year
  Sex: Male
  Weight: 104.3 kg

DRUGS (5)
  1. SUNOSI [Suspect]
     Active Substance: SOLRIAMFETOL
     Indication: Narcolepsy
     Route: 065
  2. SUNOSI [Suspect]
     Active Substance: SOLRIAMFETOL
     Indication: Somnolence
     Route: 065
  3. SUNOSI [Suspect]
     Active Substance: SOLRIAMFETOL
     Route: 065
     Dates: start: 202506
  4. BUPROPION [Concomitant]
     Active Substance: BUPROPION
     Indication: Affective disorder
     Route: 065
  5. ZOLOFT [Concomitant]
     Active Substance: SERTRALINE HYDROCHLORIDE
     Indication: Depression
     Route: 065

REACTIONS (5)
  - Fatigue [Recovering/Resolving]
  - Therapeutic response unexpected [Unknown]
  - Drug effect less than expected [Unknown]
  - Overdose [Unknown]
  - Off label use [Unknown]
